FAERS Safety Report 15431082 (Version 1)
Quarter: 2018Q3

REPORT INFORMATION
  Report Type: Spontaneous
  Country: US (occurrence: US)
  Receive Date: 20180926
  Receipt Date: 20180926
  Transmission Date: 20181010
  Serious: No
  Sender: FDA-Public Use
  Company Number: US-INDIVIOR LIMITED-INDV-112533-2018

PATIENT

DRUGS (3)
  1. SUBOXONE [Suspect]
     Active Substance: BUPRENORPHINE HYDROCHLORIDE\NALOXONE HYDROCHLORIDE
     Dosage: UNK, RESUMED
     Route: 065
     Dates: start: 201807
  2. BUPRENORPHINE/NALOXONE GENERIC [Suspect]
     Active Substance: BUPRENORPHINE\NALOXONE
     Indication: PRODUCT USED FOR UNKNOWN INDICATION
     Dosage: UNK
     Route: 065
     Dates: start: 201807, end: 201807
  3. SUBOXONE [Suspect]
     Active Substance: BUPRENORPHINE HYDROCHLORIDE\NALOXONE HYDROCHLORIDE
     Indication: PRODUCT USED FOR UNKNOWN INDICATION
     Dosage: UNK, SWITCHED
     Route: 065
     Dates: end: 201807

REACTIONS (5)
  - Drug withdrawal syndrome [Recovering/Resolving]
  - Therapeutic response decreased [Unknown]
  - Adverse drug reaction [Not Recovered/Not Resolved]
  - Euphoric mood [Unknown]
  - Depressed mood [Unknown]

NARRATIVE: CASE EVENT DATE: 201807
